FAERS Safety Report 11343516 (Version 1)
Quarter: 2015Q3

REPORT INFORMATION
  Report Type: Spontaneous
  Country: US (occurrence: None)
  Receive Date: 20150804
  Receipt Date: 20150804
  Transmission Date: 20151125
  Serious: Yes (Life-Threatening, Hospitalization)
  Sender: FDA-Public Use
  Company Number: None

PATIENT
  Age: 34 Year
  Sex: Female
  Weight: 94.9 kg

DRUGS (7)
  1. BUPROPRION [Concomitant]
     Active Substance: BUPROPION
  2. CEPHALEXIN. [Concomitant]
     Active Substance: CEPHALEXIN
  3. RESTART [Concomitant]
  4. ADDERALL [Concomitant]
     Active Substance: AMPHETAMINE ASPARTATE\AMPHETAMINE SULFATE\DEXTROAMPHETAMINE SACCHARATE\DEXTROAMPHETAMINE SULFATE
  5. PREDNISONE. [Concomitant]
     Active Substance: PREDNISONE
  6. LAMOTRIGINE 100MG [Suspect]
     Active Substance: LAMOTRIGINE
     Indication: MOOD SWINGS
     Route: 048
  7. CLONAZEPAM. [Concomitant]
     Active Substance: CLONAZEPAM

REACTIONS (8)
  - Somnolence [None]
  - Pyrexia [None]
  - Rash morbilliform [None]
  - Myalgia [None]
  - Rash maculo-papular [None]
  - Erythema [None]
  - Oropharyngeal pain [None]
  - Fatigue [None]

NARRATIVE: CASE EVENT DATE: 20150730
